FAERS Safety Report 18172735 (Version 1)
Quarter: 2020Q3

REPORT INFORMATION
  Report Type: Spontaneous
  Country: GB (occurrence: GB)
  Receive Date: 20200819
  Receipt Date: 20200819
  Transmission Date: 20201103
  Serious: Yes (Other)
  Sender: FDA-Public Use
  Company Number: GB-ASCEND THERAPEUTICS US, LLC-2088814

PATIENT
  Age: 51 Year
  Sex: Female

DRUGS (3)
  1. OESTRODOSE (ESTRADIOL)?INDICATION FOR USE: HORMONE REPLACEMENT THERPAY [Suspect]
     Active Substance: ESTRADIOL
     Route: 062
     Dates: start: 20200710
  2. ESTROGEL [Suspect]
     Active Substance: ESTRADIOL
  3. ESTROGEL [Suspect]
     Active Substance: ESTRADIOL
     Indication: HORMONE REPLACEMENT THERAPY
     Route: 062
     Dates: start: 20200710

REACTIONS (9)
  - Depressed mood [Not Recovered/Not Resolved]
  - Anxiety [Not Recovered/Not Resolved]
  - Menopausal symptoms [Unknown]
  - Drug ineffective [Unknown]
  - Product substitution issue [Unknown]
  - Insomnia [Not Recovered/Not Resolved]
  - Product label issue [Unknown]
  - Fatigue [Not Recovered/Not Resolved]
  - Arthralgia [Not Recovered/Not Resolved]

NARRATIVE: CASE EVENT DATE: 20200710
